FAERS Safety Report 16397670 (Version 1)
Quarter: 2019Q2

REPORT INFORMATION
  Report Type: Spontaneous
  Country: JP (occurrence: JP)
  Receive Date: 20190606
  Receipt Date: 20190606
  Transmission Date: 20190711
  Serious: Yes (Hospitalization)
  Sender: FDA-Public Use
  Company Number: JP-GLAXOSMITHKLINE-JP2019JPN099224

PATIENT

DRUGS (1)
  1. FLUTIDE DISKUS [Suspect]
     Active Substance: FLUTICASONE PROPIONATE
     Dosage: 100 ?G, BID
     Route: 055

REACTIONS (1)
  - Hospitalisation [Unknown]
